FAERS Safety Report 17921883 (Version 1)
Quarter: 2020Q2

REPORT INFORMATION
  Report Type: Spontaneous
  Country: JP (occurrence: JP)
  Receive Date: 20200622
  Receipt Date: 20200622
  Transmission Date: 20200714
  Serious: Yes (Death, Hospitalization, Other)
  Sender: FDA-Public Use
  Company Number: JP-ASTELLAS-2020JP006919

PATIENT

DRUGS (2)
  1. GRACEPTOR [Suspect]
     Active Substance: TACROLIMUS
     Indication: RENAL TRANSPLANT
     Dosage: UNK UNK, UNKNOWN FREQ.
     Route: 048
  2. GRACEPTOR [Suspect]
     Active Substance: TACROLIMUS
     Route: 048
     Dates: start: 201705

REACTIONS (3)
  - Death [Fatal]
  - Herpes zoster [Recovered/Resolved]
  - Off label use [Unknown]
